FAERS Safety Report 16809465 (Version 4)
Quarter: 2019Q3

REPORT INFORMATION
  Report Type: Spontaneous
  Country: CN (occurrence: CN)
  Receive Date: 20190916
  Receipt Date: 20190923
  Transmission Date: 20191005
  Serious: Yes (Death, Life-Threatening, Hospitalization, Other)
  Sender: FDA-Public Use
  Company Number: CN-SAKK-2019SA246632AA

PATIENT
  Age: 74 Year
  Sex: Female

DRUGS (4)
  1. BAYASPIRIN [Suspect]
     Active Substance: ASPIRIN
     Indication: ANTIPLATELET THERAPY
     Dosage: 100 MG, QD
     Route: 048
  2. PLAVIX [Suspect]
     Active Substance: CLOPIDOGREL BISULFATE
     Indication: ANTIPLATELET THERAPY
     Dosage: 75 MG, QD
     Route: 048
  3. PLAVIX [Suspect]
     Active Substance: CLOPIDOGREL BISULFATE
     Dosage: UNK, LOAD DOSAGE
     Route: 048
  4. BAYASPIRIN [Suspect]
     Active Substance: ASPIRIN
     Dosage: UNK, LOAD DOSAGE
     Route: 048

REACTIONS (9)
  - Paraplegia [Unknown]
  - Spinal cord haemorrhage [Recovered/Resolved]
  - Muscular weakness [Unknown]
  - Respiratory failure [Fatal]
  - Arterial stenosis [Unknown]
  - Lung infection [Unknown]
  - Chest pain [Unknown]
  - Incontinence [Unknown]
  - Back pain [Unknown]
